FAERS Safety Report 16413633 (Version 3)
Quarter: 2019Q3

REPORT INFORMATION
  Report Type: Spontaneous
  Country: BR (occurrence: BR)
  Receive Date: 20190611
  Receipt Date: 20190724
  Transmission Date: 20191004
  Serious: Yes (Life-Threatening, Hospitalization, Other)
  Sender: FDA-Public Use
  Company Number: BR-BRISTOL-MYERS SQUIBB COMPANY-BMS-2019-044434

PATIENT
  Sex: Female

DRUGS (2)
  1. OPDIVO [Suspect]
     Active Substance: NIVOLUMAB
     Indication: METASTATIC MALIGNANT MELANOMA
     Dosage: UNK
     Route: 042
     Dates: start: 201904
  2. YERVOY [Suspect]
     Active Substance: IPILIMUMAB
     Indication: METASTATIC MALIGNANT MELANOMA
     Dosage: UNK
     Route: 065

REACTIONS (9)
  - Gastrointestinal infection [Unknown]
  - Oropharyngeal pain [Unknown]
  - Pleural effusion [Unknown]
  - Malaise [Unknown]
  - Hepatic pain [Unknown]
  - Recurrent cancer [Unknown]
  - Disease progression [Unknown]
  - Weight decreased [Unknown]
  - Oral pain [Unknown]
